FAERS Safety Report 7478254-7 (Version None)
Quarter: 2011Q2

REPORT INFORMATION
  Report Type: 
  Country: None (occurrence: None)
  Receive Date: 20110513
  Receipt Date: 20110510
  Transmission Date: 20111010
  Serious: Yes (Death, Other)
  Sender: FDA-Public Use
  Company Number: PHHY2010CA71523

PATIENT
  Sex: Male

DRUGS (5)
  1. SANDOSTATIN LAR [Suspect]
     Dosage: 60 MG, EVERY TWO WEEKS
     Route: 030
     Dates: start: 20040909
  2. SANDOSTATIN LAR [Suspect]
     Dosage: 60 MG (FREQUENCY NOT SPECIFIED)
     Route: 030
  3. SANDOSTATIN LAR [Suspect]
     Dosage: 60 MG EVERY 2 WEEKS
     Route: 030
  4. SANDOSTATIN LAR [Suspect]
     Indication: CARCINOID TUMOUR
     Dosage: 60 MG, BIW
     Route: 030
     Dates: start: 20040909
  5. SANDOSTATIN LAR [Suspect]
     Dosage: 60 MG, QMO
     Route: 030

REACTIONS (15)
  - WEIGHT DECREASED [None]
  - JOINT SWELLING [None]
  - HAEMORRHOIDS [None]
  - BALANCE DISORDER [None]
  - OEDEMA PERIPHERAL [None]
  - ASTHENIA [None]
  - DEATH [None]
  - HAEMATURIA [None]
  - ANAL FISSURE [None]
  - CYANOSIS [None]
  - PLATELET COUNT DECREASED [None]
  - DIARRHOEA [None]
  - GAIT DISTURBANCE [None]
  - PALLOR [None]
  - FATIGUE [None]
